FAERS Safety Report 7701699-4 (Version None)
Quarter: 2011Q3

REPORT INFORMATION
  Report Type: 
  Country: None (occurrence: None)
  Receive Date: 20110822
  Receipt Date: 20110815
  Transmission Date: 20111222
  Serious: Yes (Hospitalization)
  Sender: FDA-Public Use
  Company Number: US-B.I. PHARMACEUTICALS,INC./RIDGEFIELD-2011-BP-18073BP

PATIENT
  Sex: Female
  Weight: 88 kg

DRUGS (3)
  1. PLAVIX [Concomitant]
  2. PRADAXA [Suspect]
     Dosage: 300 MG
     Dates: start: 20110706, end: 20110713
  3. ASPIRIN [Concomitant]

REACTIONS (2)
  - EPISTAXIS [None]
  - CONTUSION [None]
